FAERS Safety Report 4673990-X (Version None)
Quarter: 2005Q3

REPORT INFORMATION
  Report Type: 
  Country: None (occurrence: None)
  Receive Date: 20050525
  Receipt Date: 20050517
  Transmission Date: 20060218
  Serious: Yes (Death)
  Sender: FDA-Public Use
  Company Number: 05H-144-0299134-00

PATIENT
  Age: 57 Year
  Sex: Male

DRUGS (2)
  1. DOBUTAMINE HCL [Suspect]
     Indication: STRESS ECHOCARDIOGRAM
     Dosage: 40 MCG/KG/MIN
  2. CONTRAST MEDIA [Concomitant]

REACTIONS (3)
  - CARDIAC PROCEDURE COMPLICATION [None]
  - CARDIO-RESPIRATORY ARREST [None]
  - MYOCARDIAL RUPTURE [None]
